FAERS Safety Report 5128599-0 (Version None)
Quarter: 2006Q4

REPORT INFORMATION
  Report Type: 
  Country: None (occurrence: None)
  Receive Date: 20061011
  Receipt Date: 20060926
  Transmission Date: 20070319
  Serious: Yes (Hospitalization)
  Sender: FDA-Public Use
  Company Number: 2006SP003286

PATIENT
  Age: 13 Year
  Sex: Male

DRUGS (12)
  1. XOPENEX [Suspect]
     Indication: ASTHMA
     Dosage: SEE IMAGE
     Route: 055
     Dates: start: 20060901, end: 20060901
  2. XOPENEX [Suspect]
     Indication: ASTHMA
     Dosage: SEE IMAGE
     Route: 055
     Dates: start: 20060912, end: 20060912
  3. XOPENEX [Suspect]
     Indication: ASTHMA
     Dosage: SEE IMAGE
     Route: 055
     Dates: start: 20060926, end: 20060926
  4. XOPENEX [Suspect]
     Indication: ASTHMA
     Dosage: SEE IMAGE
     Route: 055
     Dates: start: 20051101
  5. XOPENEX [Suspect]
     Indication: ASTHMA
     Dosage: SEE IMAGE
     Route: 055
     Dates: start: 20051101
  6. ADVAIR HFA [Concomitant]
  7. PULMICORT [Concomitant]
  8. EPIPEN [Concomitant]
  9. CROMOLYN SODIUM [Concomitant]
  10. AXID [Concomitant]
  11. SINGULAIR [Concomitant]
  12. XOPENEX HFA INHALATION AEROSOL [Concomitant]

REACTIONS (8)
  - ASTHMA [None]
  - CHILLS [None]
  - CONDITION AGGRAVATED [None]
  - DRUG INEFFECTIVE [None]
  - FEELING JITTERY [None]
  - GASTROOESOPHAGEAL REFLUX DISEASE [None]
  - HEART RATE INCREASED [None]
  - MUSCULAR WEAKNESS [None]
